FAERS Safety Report 25183919 (Version 1)
Quarter: 2025Q2

REPORT INFORMATION
  Report Type: Spontaneous
  Country: CN (occurrence: CN)
  Receive Date: 20250410
  Receipt Date: 20250410
  Transmission Date: 20250717
  Serious: Yes (Hospitalization, Other)
  Sender: BAXTER
  Company Number: None

PATIENT
  Age: 11 Year
  Sex: Male

DRUGS (8)
  1. IFOSFAMIDE [Suspect]
     Active Substance: IFOSFAMIDE
     Indication: Chemotherapy
     Dosage: 1 G, QD (2000 MG/M2/D) ON D2, D3 AND D4.
     Route: 041
     Dates: start: 20250314, end: 20250316
  2. IFOSFAMIDE [Suspect]
     Active Substance: IFOSFAMIDE
     Indication: CNS germinoma
  3. DEXTROSE [Suspect]
     Active Substance: DEXTROSE MONOHYDRATE
     Dosage: 200 ML, D1 D2 + CARBOPLATIN (300 MG/M2/D) 156 MG
     Route: 041
     Dates: start: 20250313, end: 20250314
  4. SODIUM CHLORIDE [Suspect]
     Active Substance: SODIUM CHLORIDE
     Dosage: 312 ML, QD, D1 D2 D3 + ETOPOSIDE (150 MG/M2/D) 78 MG
     Route: 041
     Dates: start: 20250313, end: 20250315
  5. ETOPOSIDE [Suspect]
     Active Substance: ETOPOSIDE
     Indication: Chemotherapy
     Dosage: 78 MG, QD (150 MG/M2/D), D1 D2 D3
     Route: 041
     Dates: start: 20250313, end: 20250315
  6. ETOPOSIDE [Suspect]
     Active Substance: ETOPOSIDE
     Indication: CNS germinoma
  7. CARBOPLATIN [Suspect]
     Active Substance: CARBOPLATIN
     Indication: Chemotherapy
     Dosage: 156 MG, QD (300 MG/M2/D), D1 D2
     Route: 041
     Dates: start: 20250313, end: 20250314
  8. CARBOPLATIN [Suspect]
     Active Substance: CARBOPLATIN
     Indication: CNS germinoma

REACTIONS (6)
  - Myelosuppression [Recovering/Resolving]
  - Platelet count decreased [Recovering/Resolving]
  - White blood cell count decreased [Recovering/Resolving]
  - Neutrophil count decreased [Recovering/Resolving]
  - Anaemia [Recovering/Resolving]
  - Epistaxis [Recovered/Resolved]

NARRATIVE: CASE EVENT DATE: 20250326
